FAERS Safety Report 17253845 (Version 1)
Quarter: 2020Q1

REPORT INFORMATION
  Report Type: Spontaneous
  Country: US (occurrence: US)
  Receive Date: 20200109
  Receipt Date: 20200109
  Transmission Date: 20200409
  Serious: Yes (Hospitalization)
  Sender: FDA-Public Use
  Company Number: US-AMNEAL PHARMACEUTICALS-2019-AMRX-02386

PATIENT
  Age: 38 Year
  Sex: Female
  Weight: 103 kg

DRUGS (9)
  1. FERROUS GLUCONATE [Concomitant]
     Active Substance: FERROUS GLUCONATE
     Indication: ANAEMIA
     Dosage: 3 DOSAGE FORM, DAILY
     Route: 048
     Dates: start: 20170119
  2. ACTIVELLA [Suspect]
     Active Substance: ESTRADIOL\NORETHINDRONE ACETATE
     Indication: UTERINE LEIOMYOMA
     Dosage: 2 DOSAGE FORM, DAILY
     Route: 048
  3. ALEVE [Concomitant]
     Active Substance: NAPROXEN SODIUM
     Indication: MIGRAINE
     Dosage: 2 TABLETS, AS REQUIRED
     Route: 048
     Dates: start: 2010
  4. ALEVE [Concomitant]
     Active Substance: NAPROXEN SODIUM
     Indication: PELVIC PAIN
  5. DOCUSATE SODIUM. [Concomitant]
     Active Substance: DOCUSATE SODIUM
     Indication: CONSTIPATION PROPHYLAXIS
     Dosage: 1 DOSAGE FORM, DAILY
     Route: 048
     Dates: start: 20170119
  6. ELAGOLIX [Suspect]
     Active Substance: ELAGOLIX
     Indication: UTERINE LEIOMYOMA
     Dosage: 2 DOSAGE FORM, DAILY
     Route: 048
     Dates: start: 20170821, end: 20180204
  7. RANITIDINE. [Concomitant]
     Active Substance: RANITIDINE
     Indication: GASTROOESOPHAGEAL REFLUX DISEASE
     Dosage: 2 DOSAGE FORM, DAILY
     Route: 048
     Dates: start: 2013
  8. AMLODIPINE [Concomitant]
     Active Substance: AMLODIPINE BESYLATE
     Indication: HYPERTENSION
     Dosage: 1 DOSAGE FORM, DAILY
     Route: 048
     Dates: start: 20170510
  9. LISINOPRIL AND HYDROCHLOROTHIAZIDE [Concomitant]
     Active Substance: HYDROCHLOROTHIAZIDE\LISINOPRIL
     Indication: HYPERTENSION
     Dosage: 1 DOSAGE FORM, DAILY
     Route: 048
     Dates: start: 2006

REACTIONS (1)
  - Gastroenteritis [Recovered/Resolved]

NARRATIVE: CASE EVENT DATE: 20180426
